FAERS Safety Report 5911885-1 (Version None)
Quarter: 2008Q4

REPORT INFORMATION
  Report Type: 
  Country: None (occurrence: None)
  Receive Date: 20081008
  Receipt Date: 20081003
  Transmission Date: 20090506
  Serious: Yes (Other)
  Sender: FDA-Public Use
  Company Number: US-BRISTOL-MYERS SQUIBB COMPANY-14359749

PATIENT

DRUGS (1)
  1. ORENCIA [Suspect]
     Dosage: TAKEN FOR 1 YEAR.

REACTIONS (1)
  - RETINAL ARTERY OCCLUSION [None]
